FAERS Safety Report 7892751-1 (Version None)
Quarter: 2011Q4

REPORT INFORMATION
  Report Type: 
  Country: None (occurrence: None)
  Receive Date: 20111104
  Receipt Date: 20111027
  Transmission Date: 20120403
  Serious: Yes (Other)
  Sender: FDA-Public Use
  Company Number: US-US-EMD SERONO, INC.-7026543

PATIENT
  Sex: Female

DRUGS (4)
  1. REBIF [Suspect]
     Indication: PRODUCT USED FOR UNKNOWN INDICATION
     Route: 058
     Dates: start: 20101101
  2. ANTIDEPRESSANT [Concomitant]
     Indication: DEPRESSION
  3. REBIF [Suspect]
     Route: 058
  4. IBUPROFEN [Concomitant]
     Indication: PREMEDICATION

REACTIONS (5)
  - NIGHT SWEATS [None]
  - MALAISE [None]
  - BLEPHAROSPASM [None]
  - DYSGEUSIA [None]
  - HEART RATE IRREGULAR [None]
